FAERS Safety Report 24237282 (Version 1)
Quarter: 2024Q3

REPORT INFORMATION
  Report Type: Spontaneous
  Country: DE (occurrence: DE)
  Receive Date: 20240822
  Receipt Date: 20240822
  Transmission Date: 20241017
  Serious: Yes (Death, Other)
  Sender: LABORATOIRES SERB
  Company Number: DE-SERB S.A.S.-2158608

PATIENT
  Age: 38 Year
  Sex: Female

DRUGS (4)
  1. CYANOKIT [Suspect]
     Active Substance: HYDROXOCOBALAMIN
     Indication: Respiratory fume inhalation disorder
     Route: 042
     Dates: start: 20230322, end: 20230322
  2. CYANOKIT [Suspect]
     Active Substance: HYDROXOCOBALAMIN
     Indication: Chemical poisoning
  3. CYANOKIT [Suspect]
     Active Substance: HYDROXOCOBALAMIN
     Indication: Accident
  4. NexoBrid UNK (Bromelains) [Concomitant]
     Route: 058
     Dates: start: 20230322, end: 20230322

REACTIONS (8)
  - Bradycardia [Fatal]
  - Respiratory disorder [Unknown]
  - Haemodynamic instability [Unknown]
  - Multiple organ dysfunction syndrome [Unknown]
  - Acute kidney injury [Unknown]
  - Cardiac failure acute [Unknown]
  - Arrhythmia [Fatal]
  - Hyperlactacidaemia [Fatal]

NARRATIVE: CASE EVENT DATE: 20230323
